FAERS Safety Report 25725685 (Version 1)
Quarter: 2025Q3

REPORT INFORMATION
  Report Type: Spontaneous
  Country: SG (occurrence: SG)
  Receive Date: 20250826
  Receipt Date: 20250826
  Transmission Date: 20251021
  Serious: Yes (Hospitalization, Other)
  Sender: NOVITIUM PHARMA
  Company Number: SG-NOVITIUMPHARMA-2025SGNVP02109

PATIENT
  Age: 18 Year
  Sex: Female

DRUGS (4)
  1. ESTAZOLAM [Suspect]
     Active Substance: ESTAZOLAM
     Indication: Anxiety disorder
  2. QUETIAPINE [Concomitant]
     Active Substance: QUETIAPINE
     Indication: Anxiety disorder
  3. VALPROIC ACID [Concomitant]
     Active Substance: VALPROIC ACID
     Indication: Anxiety disorder
  4. SERTRALINE [Concomitant]
     Active Substance: SERTRALINE HYDROCHLORIDE
     Indication: Anxiety disorder

REACTIONS (3)
  - Hyperammonaemic encephalopathy [Recovered/Resolved]
  - Suicide attempt [Unknown]
  - Intentional overdose [Unknown]
